FAERS Safety Report 15968923 (Version 1)
Quarter: 2019Q1

REPORT INFORMATION
  Report Type: Spontaneous
  Country: FR (occurrence: FR)
  Receive Date: 20190215
  Receipt Date: 20190215
  Transmission Date: 20190418
  Serious: Yes (Other)
  Sender: FDA-Public Use
  Company Number: FR-PFIZER INC-2019061524

PATIENT
  Age: 17 Year
  Sex: Male

DRUGS (1)
  1. LYRICA [Suspect]
     Active Substance: PREGABALIN
     Dosage: 1 DF, AS NEEDED
     Route: 048
     Dates: start: 20180709

REACTIONS (4)
  - Face oedema [Recovered/Resolved]
  - Somnolence [Recovered/Resolved]
  - Drug abuse [Not Recovered/Not Resolved]
  - Headache [Recovered/Resolved]

NARRATIVE: CASE EVENT DATE: 20180709
